FAERS Safety Report 11273859 (Version 1)
Quarter: 2015Q3

REPORT INFORMATION
  Report Type: Report from Study
  Country: CN (occurrence: CN)
  Receive Date: 20150715
  Receipt Date: 20150715
  Transmission Date: 20151125
  Serious: Yes (Other)
  Sender: FDA-Public Use
  Company Number: CN-ASTELLAS-2015US024788

PATIENT
  Age: 51 Year
  Sex: Male

DRUGS (1)
  1. MICAFUNGIN [Suspect]
     Active Substance: MICAFUNGIN
     Indication: FUNGAL INFECTION
     Route: 042
     Dates: start: 20141129, end: 20141214

REACTIONS (6)
  - White blood cell count decreased [Recovering/Resolving]
  - Chest discomfort [Recovering/Resolving]
  - Liver injury [Recovering/Resolving]
  - Agranulocytosis [Recovering/Resolving]
  - Dyspnoea [Recovering/Resolving]
  - Jaundice [Recovering/Resolving]

NARRATIVE: CASE EVENT DATE: 20141129
